FAERS Safety Report 20439758 (Version 2)
Quarter: 2022Q1

REPORT INFORMATION
  Report Type: Spontaneous
  Country: GB (occurrence: GB)
  Receive Date: 20220207
  Receipt Date: 20220217
  Transmission Date: 20220423
  Serious: Yes (Hospitalization)
  Sender: FDA-Public Use
  Company Number: GB-ViiV Healthcare Limited-GB2022EME018345

PATIENT
  Sex: Male

DRUGS (5)
  1. DOVATO [Suspect]
     Active Substance: DOLUTEGRAVIR SODIUM\LAMIVUDINE
     Indication: Product used for unknown indication
     Dosage: UNK UNK, QD, MORNING, 50/300 MG
  2. DARAPRIM [Suspect]
     Active Substance: PYRIMETHAMINE
     Indication: Product used for unknown indication
     Dosage: UNK UNK, QD, MORNING, TAB. 30, 25 OD,
  3. LEUCOVORIN CALCIUM [Suspect]
     Active Substance: LEUCOVORIN CALCIUM
     Indication: Product used for unknown indication
     Dosage: UNK UNK, QD, MORNING, 15 OD
  4. TENOFOVIR DISOPROXIL FUMARATE [Suspect]
     Active Substance: TENOFOVIR DISOPROXIL FUMARATE
     Indication: Product used for unknown indication
     Dosage: 245 MG, QD, MORNING, TABS 30 NE
  5. SULFADIAZINE [Suspect]
     Active Substance: SULFADIAZINE
     Indication: Product used for unknown indication
     Dosage: UNK UNK, BID, TAB. 500 - 1000 BD

REACTIONS (1)
  - Hospitalisation [Recovered/Resolved]
